FAERS Safety Report 16993242 (Version 2)
Quarter: 2019Q4

REPORT INFORMATION
  Report Type: Report from Study
  Country: CA (occurrence: CA)
  Receive Date: 20191105
  Receipt Date: 20191204
  Transmission Date: 20200122
  Serious: Yes (Other)
  Sender: FDA-Public Use
  Company Number: CA-BRISTOL-MYERS SQUIBB COMPANY-BMS-2019-100565

PATIENT
  Age: 37 Year
  Sex: Female

DRUGS (1)
  1. NIVOLUMAB [Suspect]
     Active Substance: NIVOLUMAB
     Indication: CERVIX CARCINOMA
     Dosage: 195 MILLIGRAM, Q2WK
     Route: 042
     Dates: start: 20190712

REACTIONS (6)
  - Cough [Unknown]
  - Nausea [Unknown]
  - Herpes zoster [Unknown]
  - Intentional product use issue [Unknown]
  - Respiratory tract congestion [Unknown]
  - Neoplasm progression [Not Recovered/Not Resolved]

NARRATIVE: CASE EVENT DATE: 20191021
